FAERS Safety Report 9769311 (Version 1)
Quarter: 2013Q4

REPORT INFORMATION
  Report Type: Spontaneous
  Country: US (occurrence: None)
  Receive Date: 20131217
  Receipt Date: 20131217
  Transmission Date: 20140711
  Serious: Yes (Life-Threatening)
  Sender: FDA-Public Use
  Company Number: None

PATIENT
  Age: 53 Year
  Sex: Female
  Weight: 77 kg

DRUGS (1)
  1. LYMPHAZURIN [Suspect]
     Indication: LYMPHATIC MAPPING
     Dosage: PRIOR TO INCISION
     Route: 058

REACTIONS (3)
  - Blood pressure systolic decreased [None]
  - Rash macular [None]
  - Local swelling [None]
